APPROVED DRUG PRODUCT: CANDESARTAN CILEXETIL
Active Ingredient: CANDESARTAN CILEXETIL
Strength: 16MG
Dosage Form/Route: TABLET;ORAL
Application: A202079 | Product #003
Applicant: APOTEX INC
Approved: Jan 10, 2014 | RLD: No | RS: No | Type: DISCN